FAERS Safety Report 5517419-8 (Version None)
Quarter: 2007Q4

REPORT INFORMATION
  Report Type: 
  Country: None (occurrence: None)
  Receive Date: 20071108
  Receipt Date: 20070724
  Transmission Date: 20080405
  Serious: Yes (Other)
  Sender: FDA-Public Use
  Company Number: 2007S1000300

PATIENT
  Sex: Female
  Weight: 74 kg

DRUGS (6)
  1. CUBICIN [Suspect]
     Indication: OSTEOMYELITIS
     Dosage: 4 MG/KG;Q24H;IV
     Route: 042
     Dates: start: 20070412, end: 20070418
  2. CUBICIN [Suspect]
     Indication: STAPHYLOCOCCAL SKIN INFECTION
     Dosage: 4 MG/KG;Q24H;IV
     Route: 042
     Dates: start: 20070412, end: 20070418
  3. GENTAMICIN [Concomitant]
  4. VANCOMYCIN [Concomitant]
  5. RIFAMPIN [Concomitant]
  6. NAFCILLIN SODIUM [Concomitant]

REACTIONS (1)
  - BLOOD CREATINE PHOSPHOKINASE INCREASED [None]
